FAERS Safety Report 21707423 (Version 1)
Quarter: 2022Q4

REPORT INFORMATION
  Report Type: Report from Study
  Country: DO (occurrence: None)
  Receive Date: 20221209
  Receipt Date: 20221209
  Transmission Date: 20230113
  Serious: Yes (Death)
  Sender: FDA-Public Use
  Company Number: 2022A402298

PATIENT
  Age: 27047 Day
  Sex: Male

DRUGS (1)
  1. CRESTOR [Suspect]
     Active Substance: ROSUVASTATIN CALCIUM
     Indication: Blood cholesterol
     Route: 048
     Dates: end: 20220704

REACTIONS (1)
  - Death [Fatal]

NARRATIVE: CASE EVENT DATE: 20220704
